FAERS Safety Report 10162589 (Version 2)
Quarter: 2015Q2

REPORT INFORMATION
  Report Type: Report from Study
  Country: IT (occurrence: IT)
  Receive Date: 20140509
  Receipt Date: 20150605
  Transmission Date: 20150821
  Serious: Yes (Death)
  Sender: FDA-Public Use
  Company Number: PHHY2014IT055120

PATIENT
  Age: 66 Year
  Sex: Female

DRUGS (5)
  1. EXEMESTANE. [Suspect]
     Active Substance: EXEMESTANE
     Dosage: 25 MG
     Route: 048
     Dates: start: 20140306, end: 20140411
  2. AFINITOR [Suspect]
     Active Substance: EVEROLIMUS
     Dosage: 10 MG, QD
     Route: 048
     Dates: start: 20140306, end: 20140411
  3. AFINITOR [Suspect]
     Active Substance: EVEROLIMUS
     Indication: BREAST CANCER
     Route: 065
     Dates: start: 2013
  4. EXEMESTANE. [Suspect]
     Active Substance: EXEMESTANE
     Indication: BREAST CANCER
     Dosage: 5 MG
     Route: 065
     Dates: start: 2013
  5. XGEVA [Suspect]
     Active Substance: DENOSUMAB
     Indication: METASTASES TO BONE
     Dosage: 120 MG, ONCE/SINGLE
     Route: 030
     Dates: start: 20140306, end: 20140306

REACTIONS (3)
  - Myocarditis [Fatal]
  - Dyspnoea [Fatal]
  - Troponin I increased [Fatal]

NARRATIVE: CASE EVENT DATE: 2013
